FAERS Safety Report 12967723 (Version 1)
Quarter: 2016Q4

REPORT INFORMATION
  Report Type: Report from Study
  Country: US (occurrence: US)
  Receive Date: 20161123
  Receipt Date: 20161123
  Transmission Date: 20170207
  Serious: No
  Sender: FDA-Public Use
  Company Number: PHEH2016US030641

PATIENT
  Age: 33 Year
  Sex: Female

DRUGS (1)
  1. GILENYA [Suspect]
     Active Substance: FINGOLIMOD HYDROCHLORIDE
     Indication: RELAPSING-REMITTING MULTIPLE SCLEROSIS
     Dosage: 0.5 MG, QD
     Route: 048
     Dates: start: 20161104

REACTIONS (14)
  - Back pain [Unknown]
  - Asthenia [Unknown]
  - Palpitations [Recovering/Resolving]
  - Nasopharyngitis [Unknown]
  - Feeling hot [Unknown]
  - Diarrhoea [Unknown]
  - Multiple sclerosis relapse [Unknown]
  - Fatigue [Unknown]
  - Thirst [Unknown]
  - Agitation [Unknown]
  - Hypoaesthesia [Unknown]
  - Nausea [Unknown]
  - Blood pressure decreased [Unknown]
  - Headache [Unknown]

NARRATIVE: CASE EVENT DATE: 201611
